FAERS Safety Report 7374501-0 (Version None)
Quarter: 2011Q1

REPORT INFORMATION
  Report Type: 
  Country: None (occurrence: None)
  Receive Date: 20110325
  Receipt Date: 20110124
  Transmission Date: 20110831
  Serious: No
  Sender: FDA-Public Use
  Company Number: US-MYLANLABS-2011S1001842

PATIENT
  Age: 81 Year
  Sex: Male
  Weight: 77.57 kg

DRUGS (4)
  1. ATENOLOL [Concomitant]
  2. FENTANYL-100 [Suspect]
     Indication: BACK PAIN
     Route: 062
     Dates: start: 20110110
  3. DIURETICS [Concomitant]
  4. FENTANYL-100 [Interacting]
     Route: 062
     Dates: start: 20101223

REACTIONS (2)
  - DRUG INTERACTION [None]
  - URINE ODOUR ABNORMAL [None]
